FAERS Safety Report 12433350 (Version 2)
Quarter: 2016Q3

REPORT INFORMATION
  Report Type: Spontaneous
  Country: US (occurrence: US)
  Receive Date: 20160603
  Receipt Date: 20160928
  Transmission Date: 20161109
  Serious: Yes (Hospitalization, Other)
  Sender: FDA-Public Use
  Company Number: US-BAYER-2016-101312

PATIENT
  Age: 60 Year
  Sex: Male
  Weight: 86.17 kg

DRUGS (2)
  1. LEVAQUIN [Suspect]
     Active Substance: LEVOFLOXACIN
     Indication: PLASMA CELL MYELOMA
     Dosage: 500 MG, UNK
     Route: 048
     Dates: start: 20071001
  2. AVELOX [Suspect]
     Active Substance: MOXIFLOXACIN HYDROCHLORIDE
     Indication: PLASMA CELL MYELOMA
     Dosage: 400 MG, UNK
     Route: 048
     Dates: start: 20110511

REACTIONS (12)
  - Hypoaesthesia [None]
  - Asthenia [None]
  - Cardiovascular disorder [None]
  - Neuropathy peripheral [None]
  - Burning sensation [None]
  - Sensory disturbance [None]
  - Mental disorder [None]
  - Paraesthesia [None]
  - Nervous system disorder [None]
  - Skin injury [None]
  - Pain [None]
  - Musculoskeletal injury [None]

NARRATIVE: CASE EVENT DATE: 200710
